FAERS Safety Report 4975617-6 (Version None)
Quarter: 2006Q2

REPORT INFORMATION
  Report Type: 
  Country: None (occurrence: None)
  Receive Date: 20060410
  Receipt Date: 20060331
  Transmission Date: 20061013
  Serious: Yes (Other)
  Sender: FDA-Public Use
  Company Number: GXKR2006GB01863

PATIENT
  Age: 82 Year
  Sex: Female

DRUGS (1)
  1. CO-AMOXICLAV (NGX) (AMOXICILLIN, CLAVULANATE) [Suspect]
     Indication: SINUS HEADACHE
     Dosage: 250 MG, TID, ORAL
     Route: 048

REACTIONS (6)
  - ANOREXIA [None]
  - BODY TEMPERATURE INCREASED [None]
  - DIARRHOEA [None]
  - HEADACHE [None]
  - MALAISE [None]
  - VOMITING [None]
